FAERS Safety Report 9011410 (Version 1)
Quarter: 2013Q1

REPORT INFORMATION
  Report Type: Spontaneous
  Country: TR (occurrence: TR)
  Receive Date: 20130111
  Receipt Date: 20130111
  Transmission Date: 20140127
  Serious: Yes (Hospitalization)
  Sender: FDA-Public Use
  Company Number: TR-MYLANLABS-2013S1000215

PATIENT
  Age: 70 Year
  Sex: Female

DRUGS (2)
  1. LEVETIRACETAM [Suspect]
     Indication: PROPHYLAXIS
     Route: 065
  2. ASPIRIN [Concomitant]
     Dosage: 300 MG DAILY FOR 5 YEARS
     Route: 065

REACTIONS (1)
  - Pemphigoid [Recovering/Resolving]
